FAERS Safety Report 22234681 (Version 12)
Quarter: 2024Q3

REPORT INFORMATION
  Report Type: Spontaneous
  Country: US (occurrence: US)
  Receive Date: 20230420
  Receipt Date: 20240717
  Transmission Date: 20241017
  Serious: Yes (Hospitalization, Other)
  Sender: PFIZER
  Company Number: US-PFIZER INC-PV202300067294

PATIENT
  Age: 84 Year
  Sex: Female
  Weight: 64.41 kg

DRUGS (2)
  1. TIKOSYN [Suspect]
     Active Substance: DOFETILIDE
     Indication: Atrial fibrillation
     Dosage: QUANTITY FOR 90 DAYS: #180 X 3 REFILLS
  2. TIKOSYN [Suspect]
     Active Substance: DOFETILIDE
     Dosage: 250 UG, 2X/DAY
     Route: 048
     Dates: start: 202211

REACTIONS (7)
  - Cardioversion [Unknown]
  - Dependence on oxygen therapy [Unknown]
  - Loss of consciousness [Unknown]
  - Wrong strength [Unknown]
  - Musculoskeletal disorder [Unknown]
  - Malaise [Unknown]
  - Post-acute COVID-19 syndrome [Not Recovered/Not Resolved]
